FAERS Safety Report 7988898-1 (Version None)
Quarter: 2011Q4

REPORT INFORMATION
  Report Type: 
  Country: None (occurrence: None)
  Receive Date: 20111215
  Receipt Date: 20111215
  Transmission Date: 20120403
  Serious: No
  Sender: FDA-Public Use
  Company Number: None

PATIENT
  Sex: Male
  Weight: 74.8435 kg

DRUGS (3)
  1. CIALIS [Suspect]
     Indication: ERECTILE DYSFUNCTION
     Dosage: 1 PER DAY
     Dates: start: 20111116
  2. CIALIS [Suspect]
     Indication: ERECTILE DYSFUNCTION
     Dosage: 1 PER DAY
     Dates: start: 20111117
  3. CIALIS [Suspect]
     Indication: ERECTILE DYSFUNCTION
     Dosage: 1 PER DAY
     Dates: start: 20111115

REACTIONS (2)
  - PAIN [None]
  - INSOMNIA [None]
